FAERS Safety Report 5476694-9 (Version None)
Quarter: 2007Q4

REPORT INFORMATION
  Report Type: 
  Country: None (occurrence: None)
  Receive Date: 20071003
  Receipt Date: 20071003
  Transmission Date: 20080405
  Serious: Yes (Hospitalization)
  Sender: FDA-Public Use
  Company Number: None

PATIENT
  Sex: Male

DRUGS (3)
  1. CETUXIMAB 400 MGM2 [Suspect]
     Indication: TRANSITIONAL CELL CARCINOMA
     Dosage: 482.5 MG WEEKLY IV
     Route: 042
     Dates: start: 20070911
  2. CETUXIMAB 250 MG/M2 [Suspect]
     Indication: TRANSITIONAL CELL CARCINOMA
     Dates: start: 20070918, end: 20070925
  3. PACLITAXEL [Suspect]
     Indication: TRANSITIONAL CELL CARCINOMA
     Dosage: 154.4 MG WEEKLY IV
     Route: 042
     Dates: start: 20070911, end: 20070925

REACTIONS (8)
  - ABDOMINAL PAIN [None]
  - CONSTIPATION [None]
  - DEHYDRATION [None]
  - NAUSEA [None]
  - PYREXIA [None]
  - URINARY TRACT INFECTION [None]
  - URINARY TRACT OBSTRUCTION [None]
  - VOMITING [None]
